FAERS Safety Report 10395156 (Version 1)
Quarter: 2014Q3

REPORT INFORMATION
  Report Type: Spontaneous
  Country: US (occurrence: US)
  Receive Date: 20140820
  Receipt Date: 20140820
  Transmission Date: 20150326
  Serious: Yes (Hospitalization, Other)
  Sender: FDA-Public Use
  Company Number: US-UNITED THERAPEUTICS-UNT-2014-005783

PATIENT
  Sex: Male
  Weight: 81.18 kg

DRUGS (2)
  1. TYVASO [Suspect]
     Active Substance: TREPROSTINIL
     Indication: OBSTRUCTIVE AIRWAYS DISORDER
     Dosage: 18-126 ?G,QID
     Dates: start: 20120117
  2. REVATIO [Concomitant]
     Active Substance: SILDENAFIL CITRATE
     Indication: PRODUCT USED FOR UNKNOWN INDICATION

REACTIONS (3)
  - Unevaluable event [Unknown]
  - Eye haemorrhage [Unknown]
  - Gout [Unknown]

NARRATIVE: CASE EVENT DATE: 2014
